APPROVED DRUG PRODUCT: FAMOTIDINE
Active Ingredient: FAMOTIDINE
Strength: 10MG
Dosage Form/Route: TABLET;ORAL
Application: A075512 | Product #001
Applicant: P AND L DEVELOPMENT LLC
Approved: Jul 26, 2001 | RLD: No | RS: No | Type: OTC